FAERS Safety Report 6467670-8 (Version None)
Quarter: 2009Q4

REPORT INFORMATION
  Report Type: 
  Country: None (occurrence: None)
  Receive Date: 20091202
  Receipt Date: 20091123
  Transmission Date: 20100525
  Serious: Yes (Other)
  Sender: FDA-Public Use
  Company Number: PHHY2009GB51770

PATIENT
  Age: 13 Year

DRUGS (2)
  1. METHYLPHENIDATE HCL [Suspect]
     Indication: ATTENTION DEFICIT/HYPERACTIVITY DISORDER
     Dosage: 60 MG
  2. RISPERDAL [Suspect]
     Indication: CONDUCT DISORDER
     Dosage: 0.5 MG, QD
     Dates: start: 20060801, end: 20070201

REACTIONS (1)
  - WEIGHT INCREASED [None]
